FAERS Safety Report 8290960 (Version 3)
Quarter: 2014Q3

REPORT INFORMATION
  Report Type: Report from Study
  Country: US (occurrence: US)
  Receive Date: 20111122
  Receipt Date: 20140918
  Transmission Date: 20150326
  Serious: Yes (Other)
  Sender: FDA-Public Use
  Company Number: PHEH2011US01514

PATIENT
  Age: 63 Year
  Sex: Female
  Weight: 132.43 kg

DRUGS (12)
  1. HUMALOG [Concomitant]
     Active Substance: INSULIN LISPRO
     Dosage: 100 ML, UNK
     Route: 058
  2. LISINOPRIL. [Concomitant]
     Active Substance: LISINOPRIL
     Dosage: 5 MG, UNK
     Route: 048
  3. GABAPENTIN. [Concomitant]
     Active Substance: GABAPENTIN
     Dosage: 100 MG, UNK
     Route: 048
  4. GILENYA [Suspect]
     Active Substance: FINGOLIMOD HYDROCHLORIDE
     Indication: MULTIPLE SCLEROSIS
     Dosage: 0.5 MG, QD
     Route: 048
     Dates: end: 201304
  5. PROVIGIL [Concomitant]
     Active Substance: MODAFINIL
     Dosage: 100 MG, UNK
     Route: 048
  6. ACTOS [Concomitant]
     Active Substance: PIOGLITAZONE HYDROCHLORIDE
     Dosage: 15 MG, UNK
     Route: 048
  7. SIMVASTATIN. [Concomitant]
     Active Substance: SIMVASTATIN
     Dosage: 10 MG, UNK
     Route: 048
  8. FAMPRIDINE [Concomitant]
     Active Substance: DALFAMPRIDINE
     Dosage: 15 MG, UNK
     Route: 048
  9. LANTUS [Concomitant]
     Active Substance: INSULIN GLARGINE
     Dosage: 100 ML, UNK
     Route: 058
  10. AMPYRA [Suspect]
     Active Substance: DALFAMPRIDINE
     Indication: MULTIPLE SCLEROSIS
     Dosage: 10 MG, BID
     Route: 048
     Dates: start: 20100707
  11. ASPIRIN. [Concomitant]
     Active Substance: ASPIRIN
     Dosage: 8 MG, UNK
     Route: 048
  12. ATENOLOL. [Concomitant]
     Active Substance: ATENOLOL
     Dosage: 25 MG, UNK
     Route: 048

REACTIONS (4)
  - Cough [Unknown]
  - Fatigue [Unknown]
  - Blood glucose increased [Unknown]
  - Nausea [Unknown]

NARRATIVE: CASE EVENT DATE: 201305
